FAERS Safety Report 9691828 (Version 1)
Quarter: 2013Q4

REPORT INFORMATION
  Report Type: Spontaneous
  Country: US (occurrence: US)
  Receive Date: 20131116
  Receipt Date: 20131116
  Transmission Date: 20140711
  Serious: No
  Sender: FDA-Public Use
  Company Number: US-009507513-1311USA002912

PATIENT
  Age: 40 Year
  Sex: Female

DRUGS (1)
  1. NEXPLANON [Suspect]
     Dosage: 68 MG
     Route: 059

REACTIONS (1)
  - Adverse event [Unknown]
